FAERS Safety Report 9050543 (Version 1)
Quarter: 2013Q1

REPORT INFORMATION
  Report Type: Spontaneous
  Country: DE (occurrence: DE)
  Receive Date: 20130205
  Receipt Date: 20130205
  Transmission Date: 20140127
  Serious: Yes (Hospitalization, Other)
  Sender: FDA-Public Use
  Company Number: DE-ELI_LILLY_AND_COMPANY-DE201301010242

PATIENT
  Sex: Male

DRUGS (10)
  1. BYDUREON [Suspect]
     Indication: DIABETES MELLITUS
     Dosage: 2 MG, UNKNOWN
     Route: 058
     Dates: start: 20120803
  2. VALORON N [Concomitant]
  3. METOPROLOL [Concomitant]
  4. ENALAPRIL [Concomitant]
  5. SIMVASTATIN [Concomitant]
  6. PEPDUL [Concomitant]
  7. ALDACTONE [Concomitant]
  8. NOVORAPID [Concomitant]
  9. LANTUS [Concomitant]
  10. TOREM [Concomitant]
     Dosage: 10 DF, UNK

REACTIONS (3)
  - Anal fissure [Not Recovered/Not Resolved]
  - Haemorrhoids [Not Recovered/Not Resolved]
  - Off label use [Not Recovered/Not Resolved]
